FAERS Safety Report 4817665-2 (Version None)
Quarter: 2005Q4

REPORT INFORMATION
  Report Type: 
  Country: None (occurrence: None)
  Receive Date: 20051101
  Receipt Date: 20051101
  Transmission Date: 20060501
  Serious: Yes (Hospitalization)
  Sender: FDA-Public Use
  Company Number: None

PATIENT
  Age: 66 Year
  Sex: Male
  Weight: 74.8 kg

DRUGS (12)
  1. TERAZOSIN [Suspect]
     Indication: BENIGN PROSTATIC HYPERPLASIA
     Dosage: 10MG
     Dates: start: 20050920
  2. LISINOPRIL [Concomitant]
  3. FOLIC ACID [Concomitant]
  4. METFORMIN HCL [Concomitant]
  5. HYDROCODONE 5/ACETAMINOPHEN [Concomitant]
  6. CAPSAICIN [Concomitant]
  7. METOPROLOL TARTRATE [Concomitant]
  8. GEMFIBROZIL [Concomitant]
  9. ALBUTEROL [Concomitant]
  10. LOVASTATIN [Concomitant]
  11. NITROGLYCERIN [Concomitant]
  12. IPRATROPIUM BROMIDE [Concomitant]

REACTIONS (3)
  - BLOOD PRESSURE ORTHOSTATIC ABNORMAL [None]
  - DIZZINESS [None]
  - SYNCOPE [None]
